FAERS Safety Report 5139056-X (Version None)
Quarter: 2006Q4

REPORT INFORMATION
  Report Type: 
  Country: None (occurrence: None)
  Receive Date: 20061030
  Receipt Date: 20060613
  Transmission Date: 20070319
  Serious: No
  Sender: FDA-Public Use
  Company Number: US-GLAXOSMITHKLINE-A0608823A

PATIENT
  Age: 42 Year
  Sex: Female

DRUGS (3)
  1. ADVAIR HFA [Suspect]
     Indication: ASTHMA
     Dosage: 1PUFF TWICE PER DAY
     Route: 055
     Dates: start: 20060608, end: 20060611
  2. ALBUTEROL [Concomitant]
  3. MONISTAT [Concomitant]

REACTIONS (3)
  - DYSPHAGIA [None]
  - GLOSSITIS [None]
  - PHARYNGOLARYNGEAL PAIN [None]
